FAERS Safety Report 9382699 (Version 2)
Quarter: 2013Q3

REPORT INFORMATION
  Report Type: Spontaneous
  Country: US (occurrence: US)
  Receive Date: 20130703
  Receipt Date: 20130904
  Transmission Date: 20140515
  Serious: Yes (Other)
  Sender: FDA-Public Use
  Company Number: US-GILEAD-2013-0078430

PATIENT
  Age: 52 Year
  Sex: Female

DRUGS (2)
  1. LETAIRIS [Suspect]
     Indication: PULMONARY HYPERTENSION
     Dosage: 5 MG, UNK
     Dates: start: 20120702
  2. LETAIRIS [Suspect]
     Indication: LIVER DISORDER

REACTIONS (7)
  - Pulmonary oedema [Unknown]
  - Gastric haemorrhage [Unknown]
  - Haematemesis [Unknown]
  - Bronchitis [Unknown]
  - Pertussis [Unknown]
  - Pneumonia [Unknown]
  - Increased upper airway secretion [Unknown]
